FAERS Safety Report 18947316 (Version 1)
Quarter: 2021Q1

REPORT INFORMATION
  Report Type: Spontaneous
  Country: DO (occurrence: DO)
  Receive Date: 20210226
  Receipt Date: 20210226
  Transmission Date: 20210420
  Serious: Yes (Other)
  Sender: FDA-Public Use
  Company Number: DO-TOLMAR, INC.-21DO025648

PATIENT
  Age: 88 Year
  Sex: Male

DRUGS (1)
  1. ELIGARD [Suspect]
     Active Substance: LEUPROLIDE ACETATE
     Indication: PROSTATE CANCER
     Dosage: 45 MG, CYCLIC
     Route: 058
     Dates: start: 20201101

REACTIONS (2)
  - Abdominal wall wound [Unknown]
  - Purulent discharge [Unknown]

NARRATIVE: CASE EVENT DATE: 20210215
